FAERS Safety Report 5113477-3 (Version None)
Quarter: 2006Q3

REPORT INFORMATION
  Report Type: 
  Country: None (occurrence: None)
  Receive Date: 20060920
  Receipt Date: 20060905
  Transmission Date: 20061208
  Serious: Yes (Hospitalization)
  Sender: FDA-Public Use
  Company Number: 6025512

PATIENT
  Age: 77 Year
  Sex: Female

DRUGS (5)
  1. METFORMIN MERCK 850 MG (850 MG, FILM-COATED TABLET) (METFORMIN) [Suspect]
     Indication: DIABETES MELLITUS
     Dosage: 1700 MG (850 MG, 2 IN 1 D) ORAL
     Route: 048
  2. STILNOX (10 MG, FILM-COATED TABLET) (ZOLPIDEM) [Suspect]
     Indication: INSOMNIA
     Dosage: ORAL
     Route: 048
     Dates: start: 20060715
  3. EFFEXOR [Suspect]
     Indication: SPEECH DISORDER
     Dosage: ORAL
     Route: 048
     Dates: start: 20060715, end: 20060731
  4. COTAREG (80 MG, FILM-COATED TABLET) (HYDROCHLOROTHIAZIDE, VALSARTAN) [Suspect]
     Indication: HYPERTENSION
     Dosage: 80 MG (80 MG, 1 IN 1 D) ORAL
     Route: 048
  5. LIPANOR (100 MG, CAPSULE) (CIPROFIBRATE) [Suspect]
     Indication: DRUG USE FOR UNKNOWN INDICATION
     Dosage: 100 MG (100 MG, 1 IN 1 D) ORAL
     Route: 048

REACTIONS (7)
  - AGITATION [None]
  - DELIRIUM [None]
  - INCOHERENT [None]
  - REFUSAL OF TREATMENT BY PATIENT [None]
  - SEROTONIN SYNDROME [None]
  - SLEEP DISORDER [None]
  - THERAPY NON-RESPONDER [None]
